FAERS Safety Report 5621845-6 (Version None)
Quarter: 2008Q1

REPORT INFORMATION
  Report Type: 
  Country: None (occurrence: None)
  Receive Date: 20080206
  Receipt Date: 20080125
  Transmission Date: 20080703
  Serious: Yes (Other)
  Sender: FDA-Public Use
  Company Number: 2008AP000285

PATIENT
  Age: 29 Year
  Sex: Female

DRUGS (3)
  1. PAROXETINE HCL [Suspect]
     Dosage: 20 MG; PO; QD; 30 MG; PO; QD;
     Route: 048
     Dates: start: 20000101
  2. PAROXETINE HCL [Suspect]
     Dosage: 20 MG; PO; QD; 30 MG; PO; QD;
     Route: 048
     Dates: start: 20000101
  3. PAROXETINE HCL [Suspect]
     Dosage: 20 MG; PO; QD; 30 MG; PO; QD;
     Route: 048
     Dates: start: 20000104

REACTIONS (4)
  - ALCOHOL POISONING [None]
  - DRUG WITHDRAWAL SYNDROME [None]
  - INJURY [None]
  - SUICIDAL BEHAVIOUR [None]
